FAERS Safety Report 24446249 (Version 1)
Quarter: 2024Q4

REPORT INFORMATION
  Report Type: Spontaneous
  Country: US (occurrence: None)
  Receive Date: 20241016
  Receipt Date: 20241016
  Transmission Date: 20250115
  Serious: No
  Sender: Public
  Company Number: None

PATIENT
  Sex: Female

DRUGS (8)
  1. PROLIA [Suspect]
     Active Substance: DENOSUMAB
     Indication: Senile osteoporosis
     Route: 058
     Dates: start: 20230627
  2. ALBUTEROL AER HFA [Concomitant]
  3. DESVENLAFAX TAB 25MG ER [Concomitant]
  4. ECHINAGEA CAP 500MG [Concomitant]
  5. EPIPEN 2-PAK INJ 0.3MG [Concomitant]
  6. LIDODERM DIS 15% [Concomitant]
  7. MULTIVITAMIN TAB [Concomitant]
  8. VITAMIN C CHW 500MG [Concomitant]

REACTIONS (1)
  - Chronic lymphocytic leukaemia [None]
